FAERS Safety Report 17867031 (Version 1)
Quarter: 2020Q2

REPORT INFORMATION
  Report Type: Report from Study
  Country: IE (occurrence: IE)
  Receive Date: 20200605
  Receipt Date: 20200605
  Transmission Date: 20200714
  Serious: Yes (Other)
  Sender: FDA-Public Use
  Company Number: IE-JNJFOC-20191203731

PATIENT
  Age: 24 Year
  Sex: Female

DRUGS (6)
  1. STELARA [Suspect]
     Active Substance: USTEKINUMAB
     Indication: CROHN^S DISEASE
     Dosage: JDSOVMD 31 MAR 2022 INS ADMINISTERED 5-FEB-2020
     Route: 058
     Dates: start: 20180315
  2. STELARA [Suspect]
     Active Substance: USTEKINUMAB
     Indication: PSORIASIS
     Dosage: JDSOVMD EXP 31-MAR-2022 ADMINISTERED ON ON 05-FEB-2020
     Route: 058
     Dates: start: 20180215
  3. CALCICHEW-D3 [Concomitant]
     Active Substance: CALCIUM\CHOLECALCIFEROL
     Route: 050
  4. MYCOSTATIN [Concomitant]
     Active Substance: NYSTATIN
  5. NEPRAMEL [Concomitant]
     Route: 050
  6. IBUGEL [Concomitant]
     Active Substance: IBUPROFEN
     Indication: JAW DISORDER
     Dosage: PRESCRIBED IBUGEL 5%, PATIENT USES SAME INTERMITTENTLY

REACTIONS (4)
  - Impetigo [Not Recovered/Not Resolved]
  - Smear cervix abnormal [Not Recovered/Not Resolved]
  - Off label use [Unknown]
  - Product use issue [Unknown]

NARRATIVE: CASE EVENT DATE: 20180216
